FAERS Safety Report 15032010 (Version 1)
Quarter: 2018Q2

REPORT INFORMATION
  Report Type: Spontaneous
  Country: US (occurrence: US)
  Receive Date: 20180619
  Receipt Date: 20180619
  Transmission Date: 20180711
  Serious: Yes (Other)
  Sender: FDA-Public Use
  Company Number: US-AKRON, INC.-2049648

PATIENT
  Age: 8 Year

DRUGS (3)
  1. TROPICAMIDE. [Suspect]
     Active Substance: TROPICAMIDE
     Route: 047
  2. PHENYLEPHRINE HYDROCHLORIDE. [Suspect]
     Active Substance: PHENYLEPHRINE HYDROCHLORIDE
     Route: 047
  3. ATROPINE SULFATE OPHTHALMIC SOLUTION [Suspect]
     Active Substance: ATROPINE SULFATE
     Route: 047

REACTIONS (4)
  - Eye irritation [Recovered/Resolved]
  - Vision blurred [Not Recovered/Not Resolved]
  - Pupil fixed [Recovering/Resolving]
  - Wrong drug administered [Unknown]

NARRATIVE: CASE EVENT DATE: 20171213
